FAERS Safety Report 9510507 (Version 1)
Quarter: 2013Q3

REPORT INFORMATION
  Report Type: Spontaneous
  Country: US (occurrence: US)
  Receive Date: 20130909
  Receipt Date: 20130909
  Transmission Date: 20140515
  Serious: Yes (Hospitalization, Other)
  Sender: FDA-Public Use
  Company Number: US-ELI_LILLY_AND_COMPANY-US201308009810

PATIENT
  Sex: Male

DRUGS (7)
  1. EFFIENT [Suspect]
     Indication: STENT PLACEMENT
     Dosage: 10 MG, QD
     Dates: start: 201210
  2. EFFIENT [Suspect]
     Dosage: 10 MG, QD
     Route: 065
     Dates: start: 20130824
  3. ASPIRIN [Suspect]
     Dosage: 325 MG, QD
  4. NEXIUM [Concomitant]
     Dosage: 40 MG, QD
  5. CRESTOR [Concomitant]
     Indication: BLOOD CHOLESTEROL
  6. METOPROLOL [Concomitant]
     Indication: BLOOD PRESSURE
     Dosage: 100 MG, BID
  7. LISINOPRIL [Concomitant]
     Dosage: 2.5 MG, UNK

REACTIONS (4)
  - Myocardial infarction [Unknown]
  - Device occlusion [Unknown]
  - Blood cholesterol increased [Unknown]
  - Contusion [Unknown]
